FAERS Safety Report 21474889 (Version 1)
Quarter: 2022Q4

REPORT INFORMATION
  Report Type: Report from Study
  Country: US (occurrence: US)
  Receive Date: 20221019
  Receipt Date: 20221019
  Transmission Date: 20230112
  Serious: No
  Sender: FDA-Public Use
  Company Number: US-ABBVIE-4135400

PATIENT
  Sex: Male

DRUGS (2)
  1. VENCLEXTA [Suspect]
     Active Substance: VENETOCLAX
     Indication: Acute megakaryocytic leukaemia
     Dosage: FORM STRENGTH: 100 MILLIGRAM?TOOK 1 TABLET BY MOUTH ONCE DAILY WITH FOOD  AND A FULL GLASS OF WAT...
     Route: 048
  2. VENCLEXTA [Suspect]
     Active Substance: VENETOCLAX
     Indication: Acute megakaryocytic leukaemia
     Dosage: FORM STRENGTH: 100 MILLIGRAM?TOOK 1 TABLET BY MOUTH ONCE DAILY WITH FOOD  AND A FULL GLASS OF WAT...
     Route: 048
     Dates: start: 20220919

REACTIONS (1)
  - Full blood count decreased [Not Recovered/Not Resolved]
